FAERS Safety Report 8149131-3 (Version None)
Quarter: 2012Q1

REPORT INFORMATION
  Report Type: 
  Country: None (occurrence: None)
  Receive Date: 20120218
  Receipt Date: 20111021
  Transmission Date: 20120608
  Serious: No
  Sender: FDA-Public Use
  Company Number: US-ALLERGAN-1110013US

PATIENT
  Age: 46 Year
  Sex: Female

DRUGS (1)
  1. BOTOX COSMETIC [Suspect]
     Indication: SKIN WRINKLING
     Dosage: 35 UNITS, SINGLE
     Route: 030
     Dates: start: 20110629, end: 20110629

REACTIONS (7)
  - FATIGUE [None]
  - EYELID OEDEMA [None]
  - SWELLING FACE [None]
  - NAUSEA [None]
  - EYELID PTOSIS [None]
  - INFLUENZA LIKE ILLNESS [None]
  - FACIAL PARESIS [None]
